FAERS Safety Report 23677923 (Version 1)
Quarter: 2024Q1

REPORT INFORMATION
  Report Type: Spontaneous
  Country: US (occurrence: None)
  Receive Date: 20240326
  Receipt Date: 20240326
  Transmission Date: 20240410
  Serious: Yes (Other)
  Sender: FDA-Public Use
  Company Number: None

PATIENT

DRUGS (1)
  1. PAXLOVID [Suspect]
     Active Substance: NIRMATRELVIR\RITONAVIR
     Indication: SARS-CoV-2 test positive
     Dosage: OTHER QUANTITY : 3 TABLET(S);?FREQUENCY : TWICE A DAY;?
     Route: 048
     Dates: start: 20240322, end: 20240326

REACTIONS (7)
  - Reactive psychosis [None]
  - Asthenia [None]
  - Hyperhidrosis [None]
  - Nausea [None]
  - Diarrhoea [None]
  - Muscular weakness [None]
  - Tremor [None]

NARRATIVE: CASE EVENT DATE: 20240326
